FAERS Safety Report 12908441 (Version 1)
Quarter: 2016Q4

REPORT INFORMATION
  Report Type: Spontaneous
  Country: US (occurrence: US)
  Receive Date: 20161103
  Receipt Date: 20161103
  Transmission Date: 20170207
  Serious: No
  Sender: FDA-Public Use
  Company Number: US-PFIZER INC-2016512475

PATIENT
  Age: 61 Year
  Sex: Female

DRUGS (8)
  1. CLARITIN [Suspect]
     Active Substance: LORATADINE
     Dosage: UNK
  2. FENTANYL CITRATE. [Suspect]
     Active Substance: FENTANYL CITRATE
     Dosage: UNK
  3. DAYPRO [Suspect]
     Active Substance: OXAPROZIN
     Dosage: UNK
  4. PHENERGAN [Suspect]
     Active Substance: PROMETHAZINE HYDROCHLORIDE
     Dosage: UNK
  5. AMITRIPTYLINE [Suspect]
     Active Substance: AMITRIPTYLINE
     Dosage: UNK
  6. NEOMYCIN SULFATE. [Suspect]
     Active Substance: NEOMYCIN SULFATE
     Dosage: UNK
  7. OXYCODONE [Suspect]
     Active Substance: OXYCODONE
     Dosage: UNK
  8. RELAFEN [Suspect]
     Active Substance: NABUMETONE
     Dosage: UNK

REACTIONS (1)
  - Drug hypersensitivity [Unknown]
